FAERS Safety Report 6815991-9 (Version None)
Quarter: 2010Q3

REPORT INFORMATION
  Report Type: 
  Country: None (occurrence: None)
  Receive Date: 20100705
  Receipt Date: 20100625
  Transmission Date: 20110219
  Serious: No
  Sender: FDA-Public Use
  Company Number: US-BIOGENIDEC-2010BI022041

PATIENT
  Age: 32 Year
  Sex: Female

DRUGS (4)
  1. TYSABRI [Suspect]
     Indication: MULTIPLE SCLEROSIS
     Route: 042
     Dates: start: 20050225, end: 20050225
  2. TYSABRI [Suspect]
     Route: 042
     Dates: start: 20071006, end: 20091201
  3. AVONEX [Concomitant]
     Indication: MULTIPLE SCLEROSIS
     Route: 030
     Dates: start: 19980101, end: 20020101
  4. AVONEX [Concomitant]
     Route: 030
     Dates: start: 20030101, end: 20070903

REACTIONS (2)
  - FATIGUE [None]
  - MULTIPLE SCLEROSIS RELAPSE [None]
